FAERS Safety Report 10753046 (Version 2)
Quarter: 2017Q2

REPORT INFORMATION
  Report Type: Spontaneous
  Country: CH (occurrence: CH)
  Receive Date: 20150130
  Receipt Date: 20170607
  Transmission Date: 20170829
  Serious: Yes (Hospitalization)
  Sender: FDA-Public Use
  Company Number: CH-PFIZER INC-2015036595

PATIENT
  Age: 63 Year
  Sex: Female

DRUGS (5)
  1. ZOLOFT [Suspect]
     Active Substance: SERTRALINE HYDROCHLORIDE
     Indication: DEPRESSION
     Dosage: HALF TABLET OF 50 MG TABLET PER DAY
     Route: 048
     Dates: start: 201412
  2. ATORVA [Concomitant]
     Dosage: UNK
  3. SEVIKAR HCT [Interacting]
     Active Substance: AMLODIPINE BESYLATE\HYDROCHLOROTHIAZIDE\OLMESARTAN MEDOXOMIL
     Indication: HYPERTENSION
     Dosage: [AMLODIPINE BESILATE 5MG]/[ HYDROCHLOROTHIAZIDE 12.5MG]/[OLMESARTAN MEDOXOMIL 40MG],1 DF,ONCE DAILY
     Route: 048
     Dates: end: 20141210
  4. PROLIA [Concomitant]
     Active Substance: DENOSUMAB
     Dosage: UNK
  5. CHONDROSULF [Concomitant]
     Active Substance: CHONDROITIN SULFATE (CHICKEN)
     Dosage: UNK

REACTIONS (3)
  - Drug interaction [Recovered/Resolved]
  - Seizure [Recovered/Resolved]
  - Hyponatraemia [Recovered/Resolved]

NARRATIVE: CASE EVENT DATE: 201412
